FAERS Safety Report 5581303-4 (Version None)
Quarter: 2007Q4

REPORT INFORMATION
  Report Type: 
  Country: None (occurrence: None)
  Receive Date: 20071226
  Receipt Date: 20071212
  Transmission Date: 20080405
  Serious: Yes (Other)
  Sender: FDA-Public Use
  Company Number: AECAN200700277

PATIENT
  Age: 88 Year
  Sex: Male

DRUGS (1)
  1. ALBUMINAR-25 [Suspect]
     Indication: DRUG USE FOR UNKNOWN INDICATION
     Dosage: 50 ML;1X;IV
     Route: 042
     Dates: start: 20071203, end: 20071203

REACTIONS (2)
  - BLOOD PRESSURE DECREASED [None]
  - HYPERSENSITIVITY [None]
